FAERS Safety Report 8910490 (Version 1)
Quarter: 2012Q4

REPORT INFORMATION
  Report Type: 
  Country: US (occurrence: US)
  Receive Date: 20121114
  Receipt Date: 20121114
  Transmission Date: 20130627
  Serious: No
  Sender: FDA-Public Use
  Company Number: US-PFIZER INC-2012284281

PATIENT
  Age: 58 Year
  Sex: Male
  Weight: 88.44 kg

DRUGS (1)
  1. LYRICA [Suspect]
     Indication: PAIN
     Dosage: 200 mg, 2x/day
     Route: 048
     Dates: end: 201210

REACTIONS (1)
  - Pain [Not Recovered/Not Resolved]
